FAERS Safety Report 6055176-X (Version None)
Quarter: 2009Q1

REPORT INFORMATION
  Report Type: 
  Country: None (occurrence: None)
  Receive Date: 20090122
  Receipt Date: 20090108
  Transmission Date: 20090719
  Serious: Yes (Death)
  Sender: FDA-Public Use
  Company Number: 039933

PATIENT
  Age: 66 Year
  Sex: Female

DRUGS (5)
  1. VERAPAMIL [Suspect]
  2. IBUPROFEN [Suspect]
  3. GABAPENTIN [Suspect]
  4. QUETIAPINE FUMARATE [Suspect]
  5. ACETYLSALICYLIC ACID SRT [Suspect]

REACTIONS (2)
  - COMPLETED SUICIDE [None]
  - DRUG TOXICITY [None]
